FAERS Safety Report 12543167 (Version 3)
Quarter: 2016Q4

REPORT INFORMATION
  Report Type: Spontaneous
  Country: BR (occurrence: BR)
  Receive Date: 20160711
  Receipt Date: 20161006
  Transmission Date: 20170207
  Serious: Yes (Hospitalization, Other)
  Sender: FDA-Public Use
  Company Number: BR-ROCHE-1789823

PATIENT
  Sex: Female

DRUGS (1)
  1. RIVOTRIL [Suspect]
     Active Substance: CLONAZEPAM
     Indication: ANXIETY
     Dosage: 2.5 MG/ML
     Route: 065
     Dates: start: 201509

REACTIONS (11)
  - Uterine disorder [Unknown]
  - Depression [Unknown]
  - Tinnitus [Not Recovered/Not Resolved]
  - Asthenia [Unknown]
  - Pyrexia [Not Recovered/Not Resolved]
  - Tremor [Not Recovered/Not Resolved]
  - Headache [Not Recovered/Not Resolved]
  - Blood pressure increased [Unknown]
  - Infection [Unknown]
  - Poor quality sleep [Unknown]
  - Diarrhoea [Unknown]
